FAERS Safety Report 10725297 (Version 2)
Quarter: 2015Q3

REPORT INFORMATION
  Report Type: Spontaneous
  Country: US (occurrence: US)
  Receive Date: 20150120
  Receipt Date: 20150817
  Transmission Date: 20151125
  Serious: Yes (Life-Threatening, Hospitalization, Disabling, Congenital Anomaly, Other)
  Sender: FDA-Public Use
  Company Number: US-ASTRAZENECA-2015SE03289

PATIENT
  Age: 86 Day
  Sex: Female

DRUGS (6)
  1. SYNAGIS [Suspect]
     Active Substance: PALIVIZUMAB
     Indication: ANOMALOUS PULMONARY VENOUS CONNECTION
     Route: 030
     Dates: start: 20141218
  2. SYNAGIS [Suspect]
     Active Substance: PALIVIZUMAB
     Indication: ANOMALOUS PULMONARY VENOUS CONNECTION
     Dosage: 15 MG/KG MONTHLY, 64 MG
     Route: 030
     Dates: start: 20141223
  3. SYNAGIS [Suspect]
     Active Substance: PALIVIZUMAB
     Indication: ANTIVIRAL PROPHYLAXIS
     Dosage: 15 MG/KG MONTHLY, 64 MG
     Route: 030
     Dates: start: 20141223
  4. SYNAGIS [Suspect]
     Active Substance: PALIVIZUMAB
     Indication: ANTIVIRAL PROPHYLAXIS
     Route: 030
     Dates: start: 20141218
  5. SYNAGIS [Suspect]
     Active Substance: PALIVIZUMAB
     Indication: ANOMALOUS PULMONARY VENOUS CONNECTION
     Dosage: 15 MG/KG MONTHLY, 71 MG
     Route: 030
     Dates: start: 20150126
  6. SYNAGIS [Suspect]
     Active Substance: PALIVIZUMAB
     Indication: ANTIVIRAL PROPHYLAXIS
     Dosage: 15 MG/KG MONTHLY, 71 MG
     Route: 030
     Dates: start: 20150126

REACTIONS (4)
  - Vomiting [Unknown]
  - Anomalous pulmonary venous connection [Not Recovered/Not Resolved]
  - Respiratory distress [Unknown]
  - Pulmonary hypertension [Unknown]

NARRATIVE: CASE EVENT DATE: 20141227
